FAERS Safety Report 25751043 (Version 1)
Quarter: 2025Q3

REPORT INFORMATION
  Report Type: Spontaneous
  Country: US (occurrence: US)
  Receive Date: 20250902
  Receipt Date: 20250902
  Transmission Date: 20251020
  Serious: No
  Sender: BAUSCH AND LOMB
  Company Number: US-BAUSCH-BH-2025-016720

PATIENT
  Age: 86 Year
  Sex: Female

DRUGS (2)
  1. RETIN-A [Suspect]
     Active Substance: TRETINOIN
     Indication: Skin disorder
     Route: 061
     Dates: start: 20250822
  2. RETIN-A [Suspect]
     Active Substance: TRETINOIN
     Indication: Product use in unapproved indication

REACTIONS (4)
  - Application site erythema [Unknown]
  - Product physical consistency issue [Unknown]
  - Product use complaint [Unknown]
  - Product use in unapproved indication [Unknown]

NARRATIVE: CASE EVENT DATE: 20250801
